FAERS Safety Report 6389200-1 (Version None)
Quarter: 2009Q4

REPORT INFORMATION
  Report Type: 
  Country: None (occurrence: None)
  Receive Date: 20091002
  Receipt Date: 20090203
  Transmission Date: 20100525
  Serious: Yes (Other)
  Sender: FDA-Public Use
  Company Number: 185190USA

PATIENT
  Age: 55 Year
  Sex: Male
  Weight: 117 kg

DRUGS (4)
  1. VECURONIUM BROMIDE [Suspect]
     Indication: PARALYSIS
     Dosage: 100MG/100ML @ 1.3MG/KG/MINS, INTRAVENOUS (NOT OTHERWISE SPESIFIED)
     Route: 042
     Dates: start: 20090120
  2. VECURONIUM BROMIDE [Suspect]
     Indication: SEDATION
     Dosage: 100MG/100ML @ 1.3MG/KG/MINS, INTRAVENOUS (NOT OTHERWISE SPESIFIED)
     Route: 042
     Dates: start: 20090120
  3. MORPHINE [Concomitant]
  4. MIDAZOLAM HCL [Concomitant]

REACTIONS (2)
  - ANAESTHETIC COMPLICATION [None]
  - DRUG EFFECT DECREASED [None]
